FAERS Safety Report 19764726 (Version 2)
Quarter: 2021Q3

REPORT INFORMATION
  Report Type: Spontaneous
  Country: US (occurrence: US)
  Receive Date: 20210831
  Receipt Date: 20210909
  Transmission Date: 20211014
  Serious: No
  Sender: FDA-Public Use
  Company Number: US-AMGEN-USASP2021133040

PATIENT
  Sex: Male

DRUGS (7)
  1. ONE TOUCH [Concomitant]
     Active Substance: DEXTROSE
  2. AMLODIPINE [Concomitant]
     Active Substance: AMLODIPINE BESYLATE
  3. OLMESARTAN/HYDROCHLOROTHIAZIDE [Concomitant]
     Active Substance: HYDROCHLOROTHIAZIDE\OLMESARTAN MEDOXOMIL
  4. ATORVASTATIN [Concomitant]
     Active Substance: ATORVASTATIN
  5. OZEMPIC [Concomitant]
     Active Substance: SEMAGLUTIDE
  6. CEPHALEXINE [Concomitant]
     Active Substance: CEPHALEXIN
  7. OTEZLA [Suspect]
     Active Substance: APREMILAST
     Indication: PSORIASIS
     Dosage: 30 MILLIGRAM, BID
     Route: 048

REACTIONS (1)
  - Rash [Not Recovered/Not Resolved]
